FAERS Safety Report 6819359-0 (Version None)
Quarter: 2010Q3

REPORT INFORMATION
  Report Type: 
  Country: None (occurrence: None)
  Receive Date: 20100707
  Receipt Date: 20100628
  Transmission Date: 20110219
  Serious: Yes (Hospitalization)
  Sender: FDA-Public Use
  Company Number: FR-SANOFI-AVENTIS-2010SA037633

PATIENT
  Age: 64 Year
  Sex: Male

DRUGS (5)
  1. CEFOTAXIME SODIUM [Suspect]
     Dosage: 8 G (2 G EVERY 6 HOURS)
     Route: 042
     Dates: start: 20100421, end: 20100429
  2. CONTRAMAL [Suspect]
     Dosage: 200 MG (100 MG, 1 IN 12 HOURS)
     Route: 042
     Dates: start: 20100401, end: 20100424
  3. INVANZ [Suspect]
     Route: 042
     Dates: start: 20100415, end: 20100421
  4. ACUPAN [Suspect]
     Dosage: 4 U (1 U EVERY 6 HOURS)
     Route: 042
     Dates: start: 20100426, end: 20100430
  5. AMIKACIN [Concomitant]
     Dates: start: 20100406, end: 20100423

REACTIONS (4)
  - COMPLEX PARTIAL SEIZURES [None]
  - DISORIENTATION [None]
  - HALLUCINATION, VISUAL [None]
  - HYPERHIDROSIS [None]
